FAERS Safety Report 26024665 (Version 1)
Quarter: 2025Q4

REPORT INFORMATION
  Report Type: Report from Study
  Country: JP (occurrence: JP)
  Receive Date: 20251111
  Receipt Date: 20251111
  Transmission Date: 20260118
  Serious: Yes (Death, Other)
  Sender: ROCHE
  Company Number: JP-ROCHE-10000427134

PATIENT

DRUGS (1)
  1. TOCILIZUMAB [Suspect]
     Active Substance: TOCILIZUMAB
     Indication: Castleman^s disease
     Route: 065

REACTIONS (32)
  - Pneumonia [Fatal]
  - Sepsis [Fatal]
  - Cellulitis [Unknown]
  - Neoplasm [Fatal]
  - Lymphoma [Fatal]
  - Aspergillus infection [Fatal]
  - Staphylococcal sepsis [Fatal]
  - Chronic respiratory failure [Fatal]
  - Respiratory failure [Fatal]
  - Pulmonary haemorrhage [Fatal]
  - Interstitial lung disease [Fatal]
  - Gastrointestinal haemorrhage [Fatal]
  - Upper gastrointestinal haemorrhage [Fatal]
  - Pneumatosis intestinalis [Fatal]
  - Gastrointestinal perforation [Fatal]
  - Ventricular tachycardia [Fatal]
  - Arrhythmia [Fatal]
  - Jaundice cholestatic [Fatal]
  - Acute kidney injury [Fatal]
  - Renal failure [Fatal]
  - Cerebral infarction [Fatal]
  - Haemorrhagic cerebral infarction [Fatal]
  - Autoimmune haemolytic anaemia [Fatal]
  - Multiple organ dysfunction syndrome [Fatal]
  - Death [Fatal]
  - Appendicitis [Unknown]
  - Bronchitis [Unknown]
  - Cytomegalovirus infection [Unknown]
  - Herpes zoster [Unknown]
  - Lymphoma [Unknown]
  - Colon cancer [Unknown]
  - Metastases to liver [Unknown]
